FAERS Safety Report 6610035-6 (Version None)
Quarter: 2010Q1

REPORT INFORMATION
  Report Type: 
  Country: None (occurrence: None)
  Receive Date: 20100224
  Receipt Date: 20100215
  Transmission Date: 20100710
  Serious: Yes (Other)
  Sender: FDA-Public Use
  Company Number: DE-GDP-09407167

PATIENT
  Sex: Male
  Weight: 84 kg

DRUGS (1)
  1. ORACEA [Suspect]
     Indication: ROSACEA
     Dosage: (ORAL)
     Route: 048
     Dates: start: 20090625, end: 20090630

REACTIONS (5)
  - ARRHYTHMIA [None]
  - DYSPHONIA [None]
  - GASTRIC DISORDER [None]
  - PHARYNGEAL INFLAMMATION [None]
  - THROAT IRRITATION [None]
